FAERS Safety Report 8826393 (Version 2)
Quarter: 2012Q4

REPORT INFORMATION
  Report Type: 
  Country: NL (occurrence: NL)
  Receive Date: 20121008
  Receipt Date: 20121107
  Transmission Date: 20130627
  Serious: Yes (Death, Hospitalization, Other)
  Sender: FDA-Public Use
  Company Number: PHHY2012NL087736

PATIENT
  Age: 63 Year
  Sex: Male

DRUGS (3)
  1. ZOMETA [Suspect]
     Indication: LEIOMYOSARCOMA METASTATIC
     Dosage: 4 mg / 100ml once in 42 days
  2. ZOMETA [Suspect]
     Dosage: 4 mg / 100ml once in 42 days
     Dates: start: 20110412
  3. ZOMETA [Suspect]
     Dosage: 4 mg / 100ml once in 42 days
     Dates: start: 20121004

REACTIONS (6)
  - Pneumonia [Fatal]
  - Major depression [Unknown]
  - Neoplasm progression [Unknown]
  - Malignant neoplasm progression [Unknown]
  - Nausea [Unknown]
  - Back pain [Unknown]
